FAERS Safety Report 11870772 (Version 1)
Quarter: 2015Q4

REPORT INFORMATION
  Report Type: Spontaneous
  Country: IE (occurrence: IE)
  Receive Date: 20151228
  Receipt Date: 20151228
  Transmission Date: 20160305
  Serious: Yes (Other)
  Sender: FDA-Public Use
  Company Number: IE-009507513-1509IRL000028

PATIENT
  Age: 46 Year
  Sex: Female

DRUGS (3)
  1. SERETIDE [Concomitant]
     Active Substance: FLUTICASONE FUROATE\SALMETEROL XINAFOATE
     Dosage: 500 MG, INHALER
     Dates: start: 2004
  2. GRAZAX [Suspect]
     Active Substance: PHLEUM PRATENSE POLLEN
     Indication: PRODUCT USED FOR UNKNOWN INDICATION
     Dosage: STRENGTH 75000 SQ-T, DOSE 75000 SQ-T, UNKNOWN
     Route: 065
     Dates: start: 20150818, end: 20150818
  3. ALBUTEROL. [Concomitant]
     Active Substance: ALBUTEROL
     Dosage: 200 MG, INHALER
     Dates: start: 2004

REACTIONS (9)
  - Ear pruritus [Recovered/Resolved]
  - Sensation of foreign body [Recovered/Resolved]
  - Feeling hot [Recovered/Resolved]
  - Eyelid ptosis [Recovering/Resolving]
  - Paraesthesia oral [Recovered/Resolved]
  - Nasal pruritus [Recovered/Resolved]
  - Peak expiratory flow rate decreased [Recovered/Resolved]
  - Throat irritation [Recovered/Resolved]
  - Rhinorrhoea [Recovered/Resolved]

NARRATIVE: CASE EVENT DATE: 20150818
